FAERS Safety Report 20346709 (Version 1)
Quarter: 2022Q1

REPORT INFORMATION
  Report Type: Spontaneous
  Country: US (occurrence: US)
  Receive Date: 20220118
  Receipt Date: 20220118
  Transmission Date: 20220423
  Serious: No
  Sender: FDA-Public Use
  Company Number: US-BEH-2022140806

PATIENT
  Sex: Female

DRUGS (4)
  1. PRIVIGEN [Suspect]
     Active Substance: HUMAN IMMUNOGLOBULIN G
     Indication: Chronic inflammatory demyelinating polyradiculoneuropathy
     Dosage: UNK (SECOND DAY OF THE INFUSION)
     Route: 065
     Dates: start: 20220106
  2. PRIVIGEN [Suspect]
     Active Substance: HUMAN IMMUNOGLOBULIN G
     Dosage: UNK (FIRST DAY OF THE INFUSION)
     Route: 065
     Dates: start: 20220105
  3. PRIVIGEN [Suspect]
     Active Substance: HUMAN IMMUNOGLOBULIN G
     Dosage: 3 DOSAGE FORM (VIALS), Q3W
     Route: 065
     Dates: start: 202110
  4. PRIVIGEN [Suspect]
     Active Substance: HUMAN IMMUNOGLOBULIN G
     Dosage: UNK
     Route: 065
     Dates: start: 202110, end: 202110

REACTIONS (7)
  - Headache [Unknown]
  - Somnolence [Unknown]
  - Pruritus [Unknown]
  - Somnolence [Unknown]
  - Nausea [Unknown]
  - Headache [Unknown]
  - Malaise [Unknown]

NARRATIVE: CASE EVENT DATE: 20211001
